FAERS Safety Report 5250097-4 (Version None)
Quarter: 2007Q1

REPORT INFORMATION
  Report Type: 
  Country: None (occurrence: None)
  Receive Date: 20070228
  Receipt Date: 20060206
  Transmission Date: 20070707
  Serious: No
  Sender: FDA-Public Use
  Company Number: US-GLAXOSMITHKLINE-A0592471A

PATIENT
  Age: 38 Year
  Sex: Female

DRUGS (4)
  1. LAMICTAL [Suspect]
     Indication: ANXIETY
     Dosage: 100MG PER DAY
     Route: 048
     Dates: start: 20050801
  2. TOPAMAX [Concomitant]
  3. NEXIUM [Concomitant]
  4. ECZEMA MEDICATION [Concomitant]

REACTIONS (3)
  - ECZEMA [None]
  - PRURITUS [None]
  - RASH [None]
